FAERS Safety Report 24646273 (Version 2)
Quarter: 2025Q1

REPORT INFORMATION
  Report Type: Spontaneous
  Country: US (occurrence: US)
  Receive Date: 20241121
  Receipt Date: 20250109
  Transmission Date: 20250408
  Serious: No
  Sender: ABBVIE
  Company Number: US-ABBVIE-6012218

PATIENT

DRUGS (1)
  1. LASTACAFT [Suspect]
     Active Substance: ALCAFTADINE
     Indication: Product used for unknown indication
     Route: 065

REACTIONS (1)
  - Periorbital swelling [Recovered/Resolved]
